FAERS Safety Report 7240676-7 (Version None)
Quarter: 2011Q1

REPORT INFORMATION
  Report Type: 
  Country: None (occurrence: None)
  Receive Date: 20110124
  Receipt Date: 20100428
  Transmission Date: 20110831
  Serious: No
  Sender: FDA-Public Use
  Company Number: US-KINGPHARMUSA00001-K201000512

PATIENT
  Sex: Female
  Weight: 34.014 kg

DRUGS (2)
  1. EPIPEN JR. [Suspect]
     Dosage: 0.15 MG, SINGLE
     Dates: start: 20100428, end: 20100428
  2. MULTIVITAMIN [Concomitant]
     Indication: SUPPLEMENTATION THERAPY
     Dosage: UNK

REACTIONS (9)
  - ACCIDENTAL EXPOSURE [None]
  - SENSATION OF HEAVINESS [None]
  - EXPIRED DRUG ADMINISTERED [None]
  - INJECTION SITE HAEMATOMA [None]
  - INJECTION SITE PALLOR [None]
  - INJECTION SITE DISCOLOURATION [None]
  - INJECTION SITE SWELLING [None]
  - INJECTION SITE PAIN [None]
  - SKELETAL INJURY [None]
